FAERS Safety Report 8073170-4 (Version None)
Quarter: 2012Q1

REPORT INFORMATION
  Report Type: 
  Country: None (occurrence: None)
  Receive Date: 20120126
  Receipt Date: 20120116
  Transmission Date: 20120608
  Serious: Yes (Death, Hospitalization, Other)
  Sender: FDA-Public Use
  Company Number: US-ELI_LILLY_AND_COMPANY-US201102003668

PATIENT
  Sex: Female
  Weight: 45.8 kg

DRUGS (4)
  1. FORTEO [Suspect]
     Indication: OSTEOPOROSIS
     Dosage: 20 UG, DAILY (1/D)
     Route: 058
  2. FORTEO [Suspect]
     Dosage: 20 UG, QD
     Route: 058
  3. FORTEO [Suspect]
     Dosage: 20 UG, QD
     Route: 058
  4. FORTEO [Suspect]
     Dosage: 20 UG, QD
     Route: 058

REACTIONS (20)
  - ALCOHOLIC LIVER DISEASE [None]
  - GASTRITIS [None]
  - BARRETT'S OESOPHAGUS [None]
  - PNEUMONIA ASPIRATION [None]
  - HIP FRACTURE [None]
  - INJECTION SITE HAEMATOMA [None]
  - INJECTION SITE PAIN [None]
  - PELVIC FRACTURE [None]
  - CHRONIC OBSTRUCTIVE PULMONARY DISEASE [None]
  - JOINT INJURY [None]
  - ANAEMIA [None]
  - ANXIETY [None]
  - DEPRESSION [None]
  - CARDIO-RESPIRATORY ARREST [None]
  - LOWER LIMB FRACTURE [None]
  - FALL [None]
  - EMPHYSEMA [None]
  - FAILURE TO THRIVE [None]
  - JOINT SWELLING [None]
  - DRUG DOSE OMISSION [None]
